FAERS Safety Report 8782128 (Version 1)
Quarter: 2012Q4

REPORT INFORMATION
  Report Type: 
  Country: US (occurrence: US)
  Receive Date: 20120913
  Receipt Date: 20120913
  Transmission Date: 20130627
  Serious: No
  Sender: FDA-Public Use
  Company Number: US-VERTEX PHARMACEUTICAL INC.-2012-019847

PATIENT
  Age: 53 Year
  Sex: Male
  Weight: 129.25 kg

DRUGS (10)
  1. VX-950 [Suspect]
     Indication: HEPATITIS C
     Dosage: 750 mg, tid
     Route: 048
  2. PEGASYS [Concomitant]
     Indication: HEPATITIS C
     Dosage: 180 ?g, UNK
  3. RIBAPAK [Concomitant]
     Indication: HEPATITIS C
     Dosage: 1200 UNK, qd
  4. RAMIPRIL [Concomitant]
     Dosage: 2.5 mg, UNK
  5. ASPIRIN [Concomitant]
     Dosage: 81 mg, UNK
  6. FISH OIL NATURE MADE [Concomitant]
  7. B COMPLEX                          /00212701/ [Concomitant]
  8. MULTIVITAMIN                       /00097801/ [Concomitant]
  9. SAW PALMETTO                       /00833501/ [Concomitant]
  10. VITAMIN B3 GERIMED [Concomitant]

REACTIONS (4)
  - Headache [Unknown]
  - Hot flush [Unknown]
  - Anaemia [Unknown]
  - Haemorrhoids [Unknown]
